FAERS Safety Report 6693667-9 (Version None)
Quarter: 2010Q2

REPORT INFORMATION
  Report Type: 
  Country: None (occurrence: None)
  Receive Date: 20100423
  Receipt Date: 20100414
  Transmission Date: 20101027
  Serious: Yes (Other)
  Sender: FDA-Public Use
  Company Number: ZA-JNJFOC-20100403407

PATIENT
  Sex: Male
  Weight: 95 kg

DRUGS (6)
  1. REVELLEX [Suspect]
     Indication: CROHN'S DISEASE
     Route: 042
  2. METHOTREXATE [Concomitant]
  3. FOLATE [Concomitant]
  4. ZESTRIL [Concomitant]
  5. DAPAMAX [Concomitant]
  6. PURICOS [Concomitant]

REACTIONS (3)
  - ACOUSTIC NEURITIS [None]
  - DEAFNESS [None]
  - HERPES VIRUS INFECTION [None]
